FAERS Safety Report 6639473-2 (Version None)
Quarter: 2010Q1

REPORT INFORMATION
  Report Type: 
  Country: None (occurrence: None)
  Receive Date: 20100315
  Receipt Date: 20100301
  Transmission Date: 20100710
  Serious: Yes (Death, Hospitalization)
  Sender: FDA-Public Use
  Company Number: 2009AC000306

PATIENT
  Age: 74 Year
  Sex: Female

DRUGS (6)
  1. DIGOXIN [Suspect]
     Dosage: .250 MG PO
     Route: 048
     Dates: start: 20071019, end: 20071028
  2. LASIX [Concomitant]
  3. TOPROL-XL [Concomitant]
  4. KAY CIEL DURA-TABS [Concomitant]
  5. VANTIN [Concomitant]
  6. AGGRENOX [Concomitant]

REACTIONS (8)
  - ARRHYTHMIA [None]
  - CARDIAC ARREST [None]
  - CEREBRAL HAEMORRHAGE [None]
  - ECONOMIC PROBLEM [None]
  - GRAND MAL CONVULSION [None]
  - HAEMORRHAGE [None]
  - MULTIPLE INJURIES [None]
  - RESPIRATORY ARREST [None]
